FAERS Safety Report 15685612 (Version 1)
Quarter: 2018Q4

REPORT INFORMATION
  Report Type: Spontaneous
  Country: US (occurrence: US)
  Receive Date: 20181121
  Receipt Date: 20181121
  Transmission Date: 20190205
  Serious: Yes (Other)
  Sender: FDA-Public Use
  Company Number: None

PATIENT
  Age: 30 Year
  Sex: Female

DRUGS (5)
  1. LAMICTAL [Suspect]
     Active Substance: LAMOTRIGINE
  2. LEVOTHYROXINE. [Suspect]
     Active Substance: LEVOTHYROXINE
  3. LABETOLOL [Suspect]
     Active Substance: LABETALOL HYDROCHLORIDE
  4. WELLBUTRIN SR [Suspect]
     Active Substance: BUPROPION HYDROCHLORIDE
  5. LATUDA [Suspect]
     Active Substance: LURASIDONE HYDROCHLORIDE

REACTIONS (2)
  - Maternal exposure during pregnancy [None]
  - Gestational hypertension [None]

NARRATIVE: CASE EVENT DATE: 20170526
